FAERS Safety Report 4981006-0 (Version None)
Quarter: 2006Q2

REPORT INFORMATION
  Report Type: 
  Country: None (occurrence: None)
  Receive Date: 20060418
  Receipt Date: 20060407
  Transmission Date: 20061013
  Serious: Yes (Other)
  Sender: FDA-Public Use
  Company Number: USA-2005-0021470

PATIENT
  Sex: Male

DRUGS (13)
  1. OXYCONTIN [Suspect]
     Dosage: 160 MG, BID,
  2. OXYCODONE HCL [Concomitant]
  3. PLAVIX [Concomitant]
  4. ASPIRIN [Concomitant]
  5. LIPITOR [Concomitant]
  6. ENALAPRIL MALEATE [Concomitant]
  7. MULTIVITAMINS (PANTHENOL, NICOTINAMIDE, RIBOFLAVIN, THIAMINE HYDROCHLO [Concomitant]
  8. HUMULIN (INSULIN ISOPHANE, HUMAN BIOSYNTHETIC, INSULIN HUMAN) [Concomitant]
  9. LANTUS [Concomitant]
  10. GLUCOTROL [Concomitant]
  11. GLUCOVANCE [Concomitant]
  12. PLETAL (CILOSTAZOL) [Concomitant]
  13. ATROVENT [Concomitant]

REACTIONS (42)
  - ANXIETY [None]
  - BACK PAIN [None]
  - BALANCE DISORDER [None]
  - CHEST PAIN [None]
  - DELUSIONAL DISORDER, UNSPECIFIED TYPE [None]
  - DEPRESSION [None]
  - DIABETES MELLITUS INADEQUATE CONTROL [None]
  - DIFFICULTY IN WALKING [None]
  - DISCOMFORT [None]
  - DIZZINESS [None]
  - DRUG ADMINISTRATION ERROR [None]
  - DRUG DEPENDENCE [None]
  - DRUG EFFECT DECREASED [None]
  - DRUG WITHDRAWAL SYNDROME [None]
  - DYSSTASIA [None]
  - EMOTIONAL DISORDER [None]
  - HYPOAESTHESIA [None]
  - HYPOREFLEXIA [None]
  - INADEQUATE ANALGESIA [None]
  - INTENTIONAL DRUG MISUSE [None]
  - INTERMITTENT CLAUDICATION [None]
  - JOINT RANGE OF MOTION DECREASED [None]
  - LETHARGY [None]
  - MENTAL DISORDER [None]
  - MIDDLE EAR EFFUSION [None]
  - MUSCULOSKELETAL STIFFNESS [None]
  - NECK PAIN [None]
  - OBSESSIVE-COMPULSIVE DISORDER [None]
  - PAIN [None]
  - PAIN IN EXTREMITY [None]
  - PARAESTHESIA [None]
  - PARANOIA [None]
  - PULSE ABNORMAL [None]
  - PULSE ABSENT [None]
  - RADICULAR PAIN [None]
  - RHINORRHOEA [None]
  - SCIATICA [None]
  - SCREAMING [None]
  - SENSATION OF FOREIGN BODY [None]
  - TENDERNESS [None]
  - TOOTH DISORDER [None]
  - VERTIGO POSITIONAL [None]
